FAERS Safety Report 9640406 (Version 1)
Quarter: 2013Q4

REPORT INFORMATION
  Report Type: Spontaneous
  Country: FR (occurrence: FR)
  Receive Date: 20131023
  Receipt Date: 20131023
  Transmission Date: 20140711
  Serious: Yes (Other)
  Sender: FDA-Public Use
  Company Number: FR-ASTRAZENECA-2013SE76413

PATIENT
  Age: 23935 Day
  Sex: Male

DRUGS (1)
  1. DIPRIVAN [Suspect]
     Dosage: 3600 MG
     Route: 042
     Dates: start: 20130920, end: 20130922

REACTIONS (1)
  - Injection site extravasation [Not Recovered/Not Resolved]
